FAERS Safety Report 18097464 (Version 1)
Quarter: 2020Q3

REPORT INFORMATION
  Report Type: Spontaneous
  Country: US (occurrence: US)
  Receive Date: 20200730
  Receipt Date: 20200730
  Transmission Date: 20201103
  Serious: Yes (Hospitalization)
  Sender: FDA-Public Use
  Company Number: None

PATIENT
  Age: 49 Year
  Sex: Female

DRUGS (1)
  1. COSENTYX [Suspect]
     Active Substance: SECUKINUMAB
     Indication: PSORIASIS
     Dosage: ?          OTHER DOSE:300MG/2ML;OTHER FREQUENCY:WK 2,3,4;?
     Route: 058
     Dates: start: 20200513

REACTIONS (3)
  - Cerebrovascular accident [None]
  - Condition aggravated [None]
  - COVID-19 [None]

NARRATIVE: CASE EVENT DATE: 202007
